FAERS Safety Report 8523533-5 (Version None)
Quarter: 2012Q3

REPORT INFORMATION
  Report Type: 
  Country: None (occurrence: None)
  Receive Date: 20120720
  Receipt Date: 20120712
  Transmission Date: 20120928
  Serious: Yes (Other)
  Sender: FDA-Public Use
  Company Number: BR-JNJFOC-20120707158

PATIENT
  Sex: Male

DRUGS (3)
  1. REMICADE [Suspect]
     Indication: PROCTOCOLITIS
     Route: 042
  2. REMICADE [Suspect]
     Route: 042
     Dates: start: 20120420
  3. UNKNOWN MEDICATION [Concomitant]
     Indication: PREMEDICATION
     Route: 065

REACTIONS (5)
  - BRONCHITIS [None]
  - INFUSION RELATED REACTION [None]
  - ASTHMA [None]
  - COUGH [None]
  - DYSPNOEA [None]
